FAERS Safety Report 14580852 (Version 1)
Quarter: 2018Q1

REPORT INFORMATION
  Report Type: Spontaneous
  Country: CH (occurrence: CH)
  Receive Date: 20180228
  Receipt Date: 20180228
  Transmission Date: 20180509
  Serious: Yes (Hospitalization)
  Sender: FDA-Public Use
  Company Number: CH-ASTRAZENECA-2018SE22037

PATIENT
  Age: 19820 Day
  Sex: Female

DRUGS (11)
  1. REVATIO [Concomitant]
     Active Substance: SILDENAFIL CITRATE
     Route: 048
  2. SEROQUEL XR [Suspect]
     Active Substance: QUETIAPINE FUMARATE
     Route: 048
     Dates: end: 20180209
  3. ALDACTONE [Concomitant]
     Active Substance: SPIRONOLACTONE
     Route: 048
  4. PANTOZOL [Concomitant]
     Active Substance: PANTOPRAZOLE SODIUM
     Route: 048
  5. SEROQUEL XR [Suspect]
     Active Substance: QUETIAPINE FUMARATE
     Route: 048
     Dates: end: 20180209
  6. STILNOX CR [Suspect]
     Active Substance: ZOLPIDEM TARTRATE
     Route: 048
     Dates: end: 20180209
  7. OPSUMIT [Concomitant]
     Active Substance: MACITENTAN
     Route: 048
  8. FLUCTINE [Suspect]
     Active Substance: FLUOXETINE HYDROCHLORIDE
     Route: 048
  9. SEROQUEL XR [Suspect]
     Active Substance: QUETIAPINE FUMARATE
     Route: 048
     Dates: end: 20180209
  10. TEMESTA (LORAZEPAM) [Suspect]
     Active Substance: LORAZEPAM
     Route: 048
     Dates: start: 20180209, end: 20180209
  11. MARCOUMAR [Concomitant]
     Active Substance: PHENPROCOUMON
     Dosage: EVERY DAY
     Route: 048

REACTIONS (3)
  - Suicide attempt [Recovered/Resolved]
  - Intentional overdose [Recovered/Resolved]
  - Altered state of consciousness [Recovered/Resolved]

NARRATIVE: CASE EVENT DATE: 20180209
